FAERS Safety Report 9251850 (Version 13)
Quarter: 2016Q1

REPORT INFORMATION
  Report Type: Spontaneous
  Country: US (occurrence: US)
  Receive Date: 20130424
  Receipt Date: 20160328
  Transmission Date: 20160526
  Serious: Yes (Hospitalization)
  Sender: FDA-Public Use
  Company Number: US-JNJFOC-20130408007

PATIENT
  Age: 39 Year
  Sex: Female

DRUGS (2)
  1. TYLENOL EXTRA STRENGTH [Suspect]
     Active Substance: ACETAMINOPHEN
     Indication: PAIN
     Dosage: TAKING ANYWHERE BETWEEN 10-12 PILLS
     Route: 048
     Dates: start: 201110
  2. TYLENOL EXTRA STRENGTH [Suspect]
     Active Substance: ACETAMINOPHEN
     Indication: HEADACHE
     Dosage: TAKING ANYWHERE BETWEEN 10-12 PILLS
     Route: 048
     Dates: start: 201110

REACTIONS (13)
  - Hepatitis [Recovered/Resolved]
  - Pancreatitis acute [Unknown]
  - Ascites [Unknown]
  - Intentional overdose [Recovered/Resolved]
  - Toxicity to various agents [Recovered/Resolved]
  - Hepatic necrosis [Unknown]
  - Pleural effusion [Unknown]
  - Coagulation factor deficiency [Unknown]
  - Acute kidney injury [Recovered/Resolved]
  - Acidosis [Unknown]
  - Pneumothorax [Unknown]
  - Cholecystitis [Unknown]
  - Acute hepatic failure [Recovered/Resolved]

NARRATIVE: CASE EVENT DATE: 20111015
